FAERS Safety Report 19272727 (Version 2)
Quarter: 2021Q3

REPORT INFORMATION
  Report Type: Report from Study
  Country: US (occurrence: US)
  Receive Date: 20210518
  Receipt Date: 20210707
  Transmission Date: 20211014
  Serious: No
  Sender: FDA-Public Use
  Company Number: NVSC2021US107265

PATIENT
  Sex: Female

DRUGS (1)
  1. COSENTYX [Suspect]
     Active Substance: SECUKINUMAB
     Indication: PSORIATIC ARTHROPATHY
     Dosage: 150 MG (INJECT 300MG SUBCUTANEOUSLY EVERY 4 WEEKS IN THE ABDOMEN, THIGH OR OUTER AREA OF ARM (ROTATE
     Route: 058

REACTIONS (1)
  - Drug ineffective [Unknown]
